FAERS Safety Report 6429721-6 (Version None)
Quarter: 2009Q4

REPORT INFORMATION
  Report Type: 
  Country: None (occurrence: None)
  Receive Date: 20091106
  Receipt Date: 20091029
  Transmission Date: 20100525
  Serious: Yes (Other)
  Sender: FDA-Public Use
  Company Number: US-BIOGENIDEC-2009BI035484

PATIENT
  Age: 29 Year
  Sex: Female

DRUGS (2)
  1. AVONEX [Suspect]
     Indication: MULTIPLE SCLEROSIS
     Route: 030
     Dates: start: 20040820, end: 20070601
  2. AVONEX [Suspect]
     Route: 030
     Dates: start: 20080601, end: 20081201

REACTIONS (2)
  - ANAESTHETIC COMPLICATION [None]
  - PROCEDURAL HEADACHE [None]
